FAERS Safety Report 7310583-X (Version None)
Quarter: 2011Q1

REPORT INFORMATION
  Report Type: 
  Country: None (occurrence: None)
  Receive Date: 20110224
  Receipt Date: 20100322
  Transmission Date: 20110831
  Serious: No
  Sender: FDA-Public Use
  Company Number: US-BRISTOL-MYERS SQUIBB COMPANY-14992424

PATIENT
  Age: 78 Year
  Sex: Female
  Weight: 73 kg

DRUGS (13)
  1. LANTUS [Concomitant]
  2. COUMADIN [Concomitant]
  3. BENICAR [Concomitant]
  4. LUTEIN [Concomitant]
  5. LIPITOR [Concomitant]
  6. GLUCOPHAGE [Suspect]
     Indication: DIABETES MELLITUS
     Dosage: TAKEN BEFORE FOR 4-5 YEARS
  7. CALCIUM [Concomitant]
  8. METFORMIN HCL [Suspect]
     Indication: DIABETES MELLITUS
  9. MICRO-K [Concomitant]
  10. MULTI-VITAMIN [Concomitant]
  11. PLAVIX [Concomitant]
  12. SPIRONOLACTONE [Concomitant]
  13. LASIX [Concomitant]

REACTIONS (1)
  - BLOOD GLUCOSE INCREASED [None]
